FAERS Safety Report 9066337 (Version 1)
Quarter: 2013Q1

REPORT INFORMATION
  Report Type: Spontaneous
  Country: IE (occurrence: IE)
  Receive Date: 20130214
  Receipt Date: 20130214
  Transmission Date: 20140127
  Serious: Yes (Hospitalization)
  Sender: FDA-Public Use
  Company Number: IE-ASTRAZENECA-2013SE09525

PATIENT
  Age: 8 Month
  Sex: Female

DRUGS (6)
  1. SYNAGIS [Suspect]
     Route: 030
     Dates: start: 20120828
  2. ABIDEC [Concomitant]
  3. FERINSOL [Concomitant]
  4. OMEPRAZOLE [Concomitant]
  5. HYDROXYCHLORQUINE [Concomitant]
  6. OXYGEN [Concomitant]

REACTIONS (1)
  - Upper respiratory tract infection [Unknown]
